FAERS Safety Report 11711367 (Version 1)
Quarter: 2015Q4

REPORT INFORMATION
  Report Type: Spontaneous
  Country: US (occurrence: US)
  Receive Date: 20151107
  Receipt Date: 20151107
  Transmission Date: 20160304
  Serious: No
  Sender: FDA-Public Use
  Company Number: US-BAUSCH-SYM-2014-21321

PATIENT
  Age: 49 Year
  Sex: Male

DRUGS (3)
  1. AMANTADINE [Concomitant]
     Active Substance: AMANTADINE
     Indication: HUNTINGTON^S DISEASE
     Dates: end: 20140515
  2. XENAZINE [Suspect]
     Active Substance: TETRABENAZINE
     Indication: HUNTINGTON^S DISEASE
     Route: 048
     Dates: start: 20140508
  3. XENAZINE [Suspect]
     Active Substance: TETRABENAZINE
     Route: 048
     Dates: start: 201501

REACTIONS (3)
  - Fall [Unknown]
  - Balance disorder [Unknown]
  - Drug ineffective [Unknown]

NARRATIVE: CASE EVENT DATE: 20140516
